FAERS Safety Report 13288559 (Version 1)
Quarter: 2017Q1

REPORT INFORMATION
  Report Type: Report from Study
  Country: DE (occurrence: DE)
  Receive Date: 20170302
  Receipt Date: 20170302
  Transmission Date: 20170428
  Serious: Yes (Hospitalization)
  Sender: FDA-Public Use
  Company Number: DE-ROCHE-1900471

PATIENT
  Age: 62 Year
  Sex: Female

DRUGS (1)
  1. TOCILIZUMAB [Suspect]
     Active Substance: TOCILIZUMAB
     Indication: RHEUMATOID ARTHRITIS
     Route: 058
     Dates: end: 201604

REACTIONS (6)
  - Gastrooesophageal reflux disease [Recovered/Resolved]
  - Barrett^s oesophagus [Recovered/Resolved]
  - Hiatus hernia [Recovered/Resolved]
  - Gastrointestinal stromal tumour [Unknown]
  - Pneumonia [Unknown]
  - Post procedural complication [Recovered/Resolved]

NARRATIVE: CASE EVENT DATE: 20160512
